FAERS Safety Report 8590142 (Version 3)
Quarter: 2012Q4

REPORT INFORMATION
  Report Type: 
  Country: JP (occurrence: JP)
  Receive Date: 20120601
  Receipt Date: 20121001
  Transmission Date: 20130627
  Serious: Yes (Death)
  Sender: FDA-Public Use
  Company Number: JP-ASTELLAS-2012JP004632

PATIENT
  Age: 79 Year
  Sex: Female

DRUGS (9)
  1. PROGRAF [Suspect]
     Indication: RHEUMATOID ARTHRITIS
     Dosage: 1 mg, UID/QD
     Route: 048
     Dates: end: 20120501
  2. ENBREL [Suspect]
     Indication: RHEUMATOID ARTHRITIS
     Dosage: 25 mg, Weekly
     Route: 058
     Dates: start: 20060615, end: 20120327
  3. ENBREL [Suspect]
     Dosage: 50 mg, Weekly
     Route: 058
     Dates: start: 20120328, end: 20120501
  4. RHEUMATREX [Suspect]
     Indication: RHEUMATOID ARTHRITIS
     Dosage: UNK
     Route: 048
     Dates: end: 20120501
  5. PREDNISOLONE [Concomitant]
     Indication: RHEUMATOID ARTHRITIS
     Dosage: 5 mg, Unknown/D
     Route: 048
     Dates: end: 20120501
  6. REBAMIPIDE [Concomitant]
     Indication: GASTRITIS
     Dosage: 100 mg, bid
     Route: 048
     Dates: end: 20120501
  7. ISCOTIN                            /00030201/ [Concomitant]
     Indication: TUBERCULOSIS
     Dosage: 200 mg, UID/QD
     Route: 048
     Dates: end: 20120501
  8. PYDOXAL [Concomitant]
     Indication: VITAMIN B6 DEFICIENCY
     Dosage: 10 mg, bid
     Route: 048
     Dates: end: 20120501
  9. FOLIAMIN [Concomitant]
     Indication: FOLATE DEFICIENCY
     Dosage: 5 mg, UID/QD
     Route: 048
     Dates: end: 20120501

REACTIONS (2)
  - Intentional drug misuse [Unknown]
  - Interstitial lung disease [Fatal]
